FAERS Safety Report 10237647 (Version 2)
Quarter: 2015Q4

REPORT INFORMATION
  Report Type: Spontaneous
  Country: NO (occurrence: NO)
  Receive Date: 20140616
  Receipt Date: 20151020
  Transmission Date: 20160304
  Serious: Yes (Death, Other)
  Sender: FDA-Public Use
  Company Number: PHHY2014NO070891

PATIENT
  Age: 38 Year
  Sex: Female

DRUGS (14)
  1. CYTARABINE. [Suspect]
     Active Substance: CYTARABINE
     Dosage: 40 MG, TID (DAYS 78, 92, 106)
     Route: 037
  2. METHOTREXATE [Suspect]
     Active Substance: METHOTREXATE
     Indication: PRECURSOR T-LYMPHOBLASTIC LYMPHOMA/LEUKAEMIA
     Dosage: 1500 MG/M2, UNK (DAYS 64 AND 78)
     Route: 042
  3. CYTARABINE. [Suspect]
     Active Substance: CYTARABINE
     Indication: PRECURSOR T-LYMPHOBLASTIC LYMPHOMA/LEUKAEMIA
     Dosage: 200 MG/M2, 5QD (DAYS 43-47)
     Route: 042
  4. METHOTREXATE [Suspect]
     Active Substance: METHOTREXATE
     Dosage: 15 MG, UNK (DAYS 15, 29, 43, 64)
     Route: 042
  5. PREDNISOLONE. [Suspect]
     Active Substance: PREDNISOLONE
     Indication: PRECURSOR T-LYMPHOBLASTIC LYMPHOMA/LEUKAEMIA
     Dosage: 40 MG/M2, UNK (DAY 1-29, TAPER TO DAY  35)
     Route: 048
  6. PREDNISOLONE. [Suspect]
     Active Substance: PREDNISOLONE
     Dosage: 10 MG, UNK
     Route: 037
  7. VINCRISTINE SULFATE. [Suspect]
     Active Substance: VINCRISTINE SULFATE
     Indication: PRECURSOR T-LYMPHOBLASTIC LYMPHOMA/LEUKAEMIA
     Dosage: 1.5 MG/M2, UNK (MAXIMAL DOSE 2.0 MG, DAYS 1, 8, 15, 22, 29)
     Route: 042
  8. MERCAPTOPURINE. [Suspect]
     Active Substance: MERCAPTOPURINE
     Indication: PRECURSOR T-LYMPHOBLASTIC LYMPHOMA/LEUKAEMIA
     Dosage: 35 MG/M2, UNK (DAYS 64-111)
     Route: 048
  9. DOXORUBICIN [Suspect]
     Active Substance: DOXORUBICIN
     Indication: PRECURSOR T-LYMPHOBLASTIC LYMPHOMA/LEUKAEMIA
     Dosage: 30 MG/M2, TID (DAYS 8, 15, 22)
     Route: 042
  10. PREDNISOLONE. [Suspect]
     Active Substance: PREDNISOLONE
     Indication: PRECURSOR T-LYMPHOBLASTIC LYMPHOMA/LEUKAEMIA
     Dosage: 40 MG/M2, UNK
     Route: 048
  11. L-ASPARAGINASE [Suspect]
     Active Substance: ASPARAGINASE
     Indication: PRECURSOR T-LYMPHOBLASTIC LYMPHOMA/LEUKAEMIA
     Dosage: 10 IU, UNK (DAYS 8-21)
     Route: 042
  12. CYCLOPHOSPHAMIDE. [Suspect]
     Active Substance: CYCLOPHOSPHAMIDE
     Indication: PRECURSOR T-LYMPHOBLASTIC LYMPHOMA/LEUKAEMIA
     Dosage: 750 MG/M2, TID (DAYS 15, 22 AND 29)
     Route: 042
  13. DAUNORUBICIN [Suspect]
     Active Substance: DAUNORUBICIN
     Indication: PRECURSOR T-LYMPHOBLASTIC LYMPHOMA/LEUKAEMIA
     Dosage: 50 MG/M2, UNK (DAYS 43, 45 AND 47)
     Route: 042
  14. THIOGUANINE [Suspect]
     Active Substance: THIOGUANINE
     Indication: PRECURSOR T-LYMPHOBLASTIC LYMPHOMA/LEUKAEMIA
     Dosage: 150 MG/M2, UNK (DAYS 43-47)
     Route: 042

REACTIONS (3)
  - Venoocclusive disease [Fatal]
  - Precursor T-lymphoblastic lymphoma/leukaemia [Fatal]
  - Haematotoxicity [Unknown]
